FAERS Safety Report 8913463 (Version 1)
Quarter: 2012Q4

REPORT INFORMATION
  Report Type: Spontaneous
  Country: US (occurrence: None)
  Receive Date: 20121114
  Receipt Date: 20121114
  Transmission Date: 20130627
  Serious: Yes (Hospitalization, Other)
  Sender: FDA-Public Use
  Company Number: US-1195194

PATIENT
  Sex: Female

DRUGS (1)
  1. POLYMYXIN B SULFATE\TRIMETHOPRIM [Suspect]
     Route: 047
     Dates: start: 201710

REACTIONS (12)
  - Stevens-Johnson syndrome [None]
  - Toxic epidermal necrolysis [None]
  - Erythema multiforme [None]
  - Eye irritation [None]
  - Eye swelling [None]
  - Lip swelling [None]
  - Swollen tongue [None]
  - Urticaria [None]
  - Hypersensitivity [None]
  - Skin lesion [None]
  - Oral pain [None]
  - Impaired work ability [None]
